FAERS Safety Report 21105333 (Version 4)
Quarter: 2023Q1

REPORT INFORMATION
  Report Type: Other
  Country: CA (occurrence: CA)
  Receive Date: 20220720
  Receipt Date: 20230322
  Transmission Date: 20230417
  Serious: Yes (Hospitalization)
  Sender: FDA-Public Use
  Company Number: CA-002147023-NVSC2019CA078880

PATIENT
  Age: 66 Year
  Sex: Female

DRUGS (6)
  1. XOLAIR [Suspect]
     Active Substance: OMALIZUMAB
     Indication: Asthma
     Dosage: 375 MG, BIW
     Route: 058
     Dates: start: 20190219
  2. XOLAIR [Suspect]
     Active Substance: OMALIZUMAB
     Dosage: 375 MG, BIW
     Route: 058
     Dates: start: 20191218
  3. XOLAIR [Suspect]
     Active Substance: OMALIZUMAB
     Dosage: 375 MG, BIW
     Route: 058
     Dates: start: 20191219
  4. XOLAIR [Suspect]
     Active Substance: OMALIZUMAB
     Dosage: 375 MG, BIW
     Route: 058
     Dates: start: 20200224
  5. XOLAIR [Suspect]
     Active Substance: OMALIZUMAB
     Dosage: 375 MG, BIW
     Route: 058
  6. PREDNISONE [Concomitant]
     Active Substance: PREDNISONE

REACTIONS (21)
  - Respiratory disorder [Unknown]
  - Sleep disorder [Unknown]
  - Pneumonia [Unknown]
  - Asthma [Unknown]
  - Dyspnoea [Unknown]
  - Gait disturbance [Unknown]
  - Asthenia [Unknown]
  - Fungal foot infection [Recovering/Resolving]
  - Blood pressure systolic increased [Unknown]
  - Discomfort [Unknown]
  - Throat clearing [Unknown]
  - Dust allergy [Unknown]
  - Sensitivity to weather change [Unknown]
  - Perfume sensitivity [Unknown]
  - Chest discomfort [Unknown]
  - Hyperventilation [Unknown]
  - Smoke sensitivity [Unknown]
  - Wheezing [Unknown]
  - Cough [Unknown]
  - Product dose omission issue [Unknown]
  - Drug ineffective [Unknown]

NARRATIVE: CASE EVENT DATE: 20191218
